FAERS Safety Report 9656346 (Version 5)
Quarter: 2014Q1

REPORT INFORMATION
  Report Type: Spontaneous
  Country: JP (occurrence: JP)
  Receive Date: 20131030
  Receipt Date: 20140124
  Transmission Date: 20141002
  Serious: Yes (Other)
  Sender: FDA-Public Use
  Company Number: JP-ROCHE-1284415

PATIENT
  Age: 63 Year
  Sex: Male

DRUGS (6)
  1. LUCENTIS [Suspect]
     Indication: AGE-RELATED MACULAR DEGENERATION
     Route: 050
     Dates: start: 20101201
  2. LUCENTIS [Suspect]
     Route: 050
     Dates: start: 20110530
  3. LUCENTIS [Suspect]
     Route: 050
     Dates: start: 20110712
  4. LUCENTIS [Suspect]
     Route: 050
     Dates: start: 20110815
  5. LUCENTIS [Suspect]
     Route: 050
     Dates: start: 20111219
  6. LUCENTIS [Suspect]
     Route: 050
     Dates: start: 20121102

REACTIONS (2)
  - Non-infectious endophthalmitis [Recovering/Resolving]
  - Inflammation [Recovering/Resolving]
